FAERS Safety Report 15480781 (Version 2)
Quarter: 2018Q4

REPORT INFORMATION
  Report Type: Report from Study
  Country: US (occurrence: US)
  Receive Date: 20181010
  Receipt Date: 20181203
  Transmission Date: 20190205
  Serious: Yes (Other)
  Sender: FDA-Public Use
  Company Number: PHEH2018US041663

PATIENT
  Sex: Female

DRUGS (1)
  1. AFINITOR [Suspect]
     Active Substance: EVEROLIMUS
     Indication: PRODUCT USED FOR UNKNOWN INDICATION
     Route: 065

REACTIONS (6)
  - Swollen tongue [Unknown]
  - Blood glucose increased [Unknown]
  - Mouth swelling [Unknown]
  - Pharyngeal oedema [Unknown]
  - Tongue pruritus [Unknown]
  - Throat irritation [Unknown]
